FAERS Safety Report 6609434-8 (Version None)
Quarter: 2010Q1

REPORT INFORMATION
  Report Type: 
  Country: None (occurrence: None)
  Receive Date: 20100224
  Receipt Date: 20100216
  Transmission Date: 20100710
  Serious: Yes (Hospitalization, Other)
  Sender: FDA-Public Use
  Company Number: 8047457

PATIENT
  Age: 64 Year
  Sex: Male

DRUGS (5)
  1. PREDNISOLONE [Suspect]
     Indication: RENAL TRANSPLANT
  2. AZATHIOPRINE [Suspect]
     Indication: RENAL TRANSPLANT
  3. BASILIXAIMB (BASILIXIMAB) [Suspect]
     Indication: PROPHYLAXIS
  4. TACROLIMUS [Suspect]
     Indication: RENAL TRANSPLANT
  5. VALGANCICLOVIR HCL [Suspect]
     Indication: ANTIVIRAL PROPHYLAXIS
     Dosage: ORAL
     Route: 048

REACTIONS (10)
  - BILIARY DILATATION [None]
  - CHOLECYSTITIS ACUTE [None]
  - CYTOMEGALOVIRUS VIRAEMIA [None]
  - GALLBLADDER NECROSIS [None]
  - HAEMOBILIA [None]
  - HEPATIC HAEMATOMA [None]
  - POST PROCEDURAL COMPLICATION [None]
  - SCLEROSING ENCAPSULATING PERITONITIS [None]
  - SMALL INTESTINAL OBSTRUCTION [None]
  - SMALL INTESTINAL PERFORATION [None]
